FAERS Safety Report 6289410-8 (Version None)
Quarter: 2009Q3

REPORT INFORMATION
  Report Type: 
  Country: None (occurrence: None)
  Receive Date: 20090730
  Receipt Date: 20090727
  Transmission Date: 20100115
  Serious: Yes (Other)
  Sender: FDA-Public Use
  Company Number: DE-BRISTOL-MYERS SQUIBB COMPANY-14672950

PATIENT
  Age: 27 Year
  Sex: Female

DRUGS (1)
  1. VOLON-A INJ [Suspect]
     Indication: ASTHMA
     Dosage: 1 DOSAGE FORM= 40 MG VIAL, AMPOULE. VOLON A 40 VIAL, ONE TIME IN THE GLUTEUS MAXIMUS
     Route: 030
     Dates: start: 20080527, end: 20080527

REACTIONS (1)
  - INJECTION SITE ATROPHY [None]
